FAERS Safety Report 9317707 (Version 1)
Quarter: 2013Q2

REPORT INFORMATION
  Report Type: Report from Study
  Country: TH (occurrence: TH)
  Receive Date: 20130530
  Receipt Date: 20130530
  Transmission Date: 20140414
  Serious: Yes (Hospitalization)
  Sender: FDA-Public Use
  Company Number: PHHY2013TH027109

PATIENT
  Age: 63 Year
  Sex: Male

DRUGS (1)
  1. ZOMETA [Suspect]
     Indication: BENIGN LYMPH NODE NEOPLASM
     Dosage: 4 MG, PER MONTH
     Route: 041

REACTIONS (8)
  - Gastric ulcer [Not Recovered/Not Resolved]
  - Gingival swelling [Recovered/Resolved]
  - Tooth hypoplasia [Not Recovered/Not Resolved]
  - Dental caries [Not Recovered/Not Resolved]
  - Mastication disorder [Not Recovered/Not Resolved]
  - Oral pain [Not Recovered/Not Resolved]
  - Glossodynia [Not Recovered/Not Resolved]
  - Toothache [Not Recovered/Not Resolved]
